FAERS Safety Report 5900730-6 (Version None)
Quarter: 2008Q3

REPORT INFORMATION
  Report Type: 
  Country: None (occurrence: None)
  Receive Date: 20080928
  Receipt Date: 20080916
  Transmission Date: 20090109
  Serious: Yes (Disabling, Other)
  Sender: FDA-Public Use
  Company Number: US-BAYER-US-2007-011617

PATIENT
  Age: 79 Year
  Sex: Male
  Weight: 85 kg

DRUGS (52)
  1. MAGNEVIST [Suspect]
     Indication: NUCLEAR MAGNETIC RESONANCE IMAGING ABDOMINAL
     Dosage: UNIT DOSE: 20 ML
     Route: 042
     Dates: start: 19981105, end: 19981105
  2. MAGNEVIST [Suspect]
     Dosage: UNIT DOSE: 40 ML
     Route: 042
     Dates: start: 20061205, end: 20061205
  3. MAGNEVIST [Suspect]
     Dosage: UNIT DOSE: 20 ML
     Route: 042
     Dates: start: 20061202, end: 20061202
  4. MAGNEVIST [Suspect]
     Dates: start: 20061206, end: 20061206
  5. MAGNEVIST [Suspect]
     Dates: start: 19920619, end: 19920619
  6. MAGNEVIST [Suspect]
     Dates: start: 20010207, end: 20010207
  7. ANTI-COAGULATION THERAPY [Concomitant]
  8. DIGOXIN [Concomitant]
  9. TENORMIN [Concomitant]
  10. ATENOLOL [Concomitant]
  11. HYDROCHLOROTHIAZIDE [Concomitant]
  12. ROCALTROL [Concomitant]
  13. CARDURA /IRE/ [Concomitant]
  14. VERAPAMIL [Concomitant]
  15. TEMAZEPAM [Concomitant]
  16. CLONAZEPAM [Concomitant]
  17. ALLOPURINOL [Concomitant]
  18. IRON [Concomitant]
  19. RESTORIL [Concomitant]
  20. COLACE [Concomitant]
  21. TYLENOL (CAPLET) [Concomitant]
  22. METOCLOPRAMIDE [Concomitant]
  23. ATORVASTATIN CALCIUM [Concomitant]
  24. OXAZEPAM [Concomitant]
  25. NEPHROCAPS [Concomitant]
  26. DROPERIDOL [Concomitant]
  27. ALBUTEROL [Concomitant]
  28. ATROVENT [Concomitant]
  29. FLOVENT [Concomitant]
  30. PHOSLO [Concomitant]
  31. ISORDIL [Concomitant]
  32. LOPRESSOR [Concomitant]
  33. AVAPRO [Concomitant]
  34. NORVASC [Concomitant]
  35. CELEXA [Concomitant]
  36. LIPITOR [Concomitant]
  37. IMDUR [Concomitant]
  38. TOPROL-XL [Concomitant]
  39. EPOGEN [Concomitant]
  40. DILTIAZEM HCL [Concomitant]
  41. PROTONIX [Concomitant]
  42. NEURONTIN [Concomitant]
  43. DIGOXIN [Concomitant]
  44. COUMADIN [Concomitant]
  45. VIAGRA [Concomitant]
  46. LORAGA [Concomitant]
  47. AMIODARONE [Concomitant]
  48. ZOFRAN [Concomitant]
  49. SARNA [Concomitant]
  50. SENNA [Concomitant]
  51. ARANESP [Concomitant]
  52. FERRLECIT /USA/ [Concomitant]
     Dosage: UNIT DOSE: 125 MG

REACTIONS (20)
  - ANXIETY [None]
  - EMOTIONAL DISTRESS [None]
  - FIBROSIS [None]
  - GAIT DISTURBANCE [None]
  - GENERAL PHYSICAL HEALTH DETERIORATION [None]
  - INJURY [None]
  - JOINT RANGE OF MOTION DECREASED [None]
  - MOBILITY DECREASED [None]
  - MUSCLE CONTRACTURE [None]
  - MUSCULOSKELETAL STIFFNESS [None]
  - NEPHROGENIC SYSTEMIC FIBROSIS [None]
  - PAIN [None]
  - QUALITY OF LIFE DECREASED [None]
  - SCAR [None]
  - SERUM FERRITIN INCREASED [None]
  - SKIN FIBROSIS [None]
  - SKIN HYPERTROPHY [None]
  - SKIN INDURATION [None]
  - SKIN OEDEMA [None]
  - SKIN TIGHTNESS [None]
